FAERS Safety Report 9394405 (Version 2)
Quarter: 2013Q3

REPORT INFORMATION
  Report Type: Spontaneous
  Country: FR (occurrence: FR)
  Receive Date: 20130711
  Receipt Date: 20130812
  Transmission Date: 20140515
  Serious: Yes (Hospitalization)
  Sender: FDA-Public Use
  Company Number: FR-009507513-1307FRA001667

PATIENT
  Age: 46 Year
  Sex: Female

DRUGS (2)
  1. NOXAFIL [Suspect]
     Dosage: UNK
     Route: 048
     Dates: start: 20130405, end: 20130414
  2. PROGRAF [Suspect]
     Dosage: UNK
     Route: 048
     Dates: start: 20130414, end: 20130418

REACTIONS (3)
  - Tremor [Recovered/Resolved]
  - Hallucination [Recovered/Resolved]
  - Nightmare [Recovered/Resolved]
